FAERS Safety Report 23346254 (Version 1)
Quarter: 2023Q4

REPORT INFORMATION
  Report Type: Spontaneous
  Country: US (occurrence: None)
  Receive Date: 20231227
  Receipt Date: 20231227
  Transmission Date: 20240109
  Serious: Yes (Life-Threatening, Hospitalization, Disabling)
  Sender: FDA-Public Use
  Company Number: None

PATIENT
  Age: 44 Year
  Sex: Female
  Weight: 65.25 kg

DRUGS (6)
  1. INJECTAFER [Suspect]
     Active Substance: FERRIC CARBOXYMALTOSE
     Indication: Iron deficiency anaemia
     Route: 042
     Dates: start: 20230622, end: 20230622
  2. DEXILANT [Concomitant]
     Active Substance: DEXLANSOPRAZOLE
  3. TWIRLA [Concomitant]
     Active Substance: ETHINYL ESTRADIOL\LEVONORGESTREL
  4. CLONAZEPAM [Concomitant]
     Active Substance: CLONAZEPAM
  5. VITAMIN D3 [Concomitant]
     Active Substance: CHOLECALCIFEROL
  6. PHOSPHORUS SUPPLEMENTS [Concomitant]

REACTIONS (15)
  - Hypophosphataemia [None]
  - Acute myocardial infarction [None]
  - Infusion related reaction [None]
  - Electrolyte imbalance [None]
  - Adverse drug reaction [None]
  - Pain [None]
  - Arthralgia [None]
  - Arrhythmia [None]
  - Sleep disorder [None]
  - Gastritis [None]
  - Oesophageal pain [None]
  - Gastrointestinal disorder [None]
  - Anxiety [None]
  - Depression [None]
  - Renal disorder [None]

NARRATIVE: CASE EVENT DATE: 20230622
